FAERS Safety Report 7570803-3 (Version None)
Quarter: 2011Q2

REPORT INFORMATION
  Report Type: 
  Country: None (occurrence: None)
  Receive Date: 20110624
  Receipt Date: 20110616
  Transmission Date: 20111010
  Serious: Yes (Hospitalization)
  Sender: FDA-Public Use
  Company Number: GB-EISAI INC-E7389-01138-CLI-GB

PATIENT
  Sex: Female
  Weight: 59 kg

DRUGS (8)
  1. EPIRUBICIN HYDROCHLORIDE [Suspect]
     Route: 042
     Dates: start: 20101124, end: 20110406
  2. CAPECITABINE [Concomitant]
     Route: 048
     Dates: start: 20100105
  3. CAPECITABINE [Concomitant]
     Route: 048
     Dates: start: 20101124, end: 20101208
  4. ENOXAPARIN SODIUM [Concomitant]
     Dates: start: 20100101
  5. CAPECITABINE [Concomitant]
     Route: 048
     Dates: start: 20101215, end: 20101229
  6. LANSOPRAZOLE [Concomitant]
     Dates: start: 20090101
  7. ACETAMINOPHEN [Concomitant]
     Indication: PAIN
     Dates: start: 20090101
  8. ACETAMINOPHEN AND CODEINE PHOSPHATE [Concomitant]
     Indication: NECK PAIN
     Route: 065
     Dates: start: 20100225

REACTIONS (2)
  - VIRAL INFECTION [None]
  - URINARY TRACT INFECTION [None]
